FAERS Safety Report 6747234-9 (Version None)
Quarter: 2010Q2

REPORT INFORMATION
  Report Type: 
  Country: None (occurrence: None)
  Receive Date: 20100528
  Receipt Date: 20100520
  Transmission Date: 20101027
  Serious: Yes (Hospitalization)
  Sender: FDA-Public Use
  Company Number: PT-GENENTECH-301765

PATIENT
  Sex: Female
  Weight: 60 kg

DRUGS (3)
  1. RITUXIMAB [Suspect]
     Indication: SYSTEMIC LUPUS ERYTHEMATOSUS
     Dosage: 1 G, DAYS 2+15
     Route: 042
     Dates: start: 20090725, end: 20090807
  2. CORTICOSTEROIDS [Concomitant]
     Indication: SYSTEMIC LUPUS ERYTHEMATOSUS
     Dosage: UNK
     Route: 048
     Dates: start: 20030101
  3. TALIDOMIDE [Concomitant]
     Indication: CUTANEOUS LUPUS ERYTHEMATOSUS
     Dosage: UNK
     Route: 048
     Dates: start: 20070101

REACTIONS (1)
  - PROGRESSIVE MULTIFOCAL LEUKOENCEPHALOPATHY [None]
